FAERS Safety Report 19955274 (Version 2)
Quarter: 2021Q4

REPORT INFORMATION
  Report Type: Spontaneous
  Country: US (occurrence: US)
  Receive Date: 20211013
  Receipt Date: 20211013
  Transmission Date: 20220303
  Serious: Yes (Other)
  Sender: FDA-Public Use
  Company Number: US-SPECGX-T202102284

PATIENT
  Age: 39 Year
  Sex: Male

DRUGS (25)
  1. OXYCODONE [Suspect]
     Active Substance: OXYCODONE
     Indication: Pain
     Dosage: UNK
     Route: 065
  2. OXYCODONE [Suspect]
     Active Substance: OXYCODONE
     Dosage: 80 MILLIGRAM, TID
     Route: 065
  3. RESTORIL [Suspect]
     Active Substance: TEMAZEPAM
     Indication: Insomnia
     Dosage: 30 MILLIGRAM, QHS
     Route: 065
  4. RESTORIL [Suspect]
     Active Substance: TEMAZEPAM
     Indication: Somnambulism
  5. PAMELOR [Suspect]
     Active Substance: NORTRIPTYLINE HYDROCHLORIDE
     Indication: Product used for unknown indication
     Dosage: 10 MILLIGRAM, QHS
     Route: 065
  6. OXYCONTIN [Suspect]
     Active Substance: OXYCODONE HYDROCHLORIDE
     Indication: Pain
     Dosage: UNK
     Route: 065
  7. OXYCONTIN [Suspect]
     Active Substance: OXYCODONE HYDROCHLORIDE
     Dosage: 8 MILLIGRAM
     Route: 065
  8. OXYCONTIN [Suspect]
     Active Substance: OXYCODONE HYDROCHLORIDE
     Dosage: 40 MILLIGRAM, QD
     Route: 065
  9. OXYCONTIN [Suspect]
     Active Substance: OXYCODONE HYDROCHLORIDE
     Dosage: 40 MILLIGRAM, Q8H
     Route: 065
  10. ARTHROTEC [Suspect]
     Active Substance: DICLOFENAC SODIUM\MISOPROSTOL
     Indication: Pain
     Dosage: 50 MILLIGRAM, BID
     Route: 065
  11. ARTHROTEC [Suspect]
     Active Substance: DICLOFENAC SODIUM\MISOPROSTOL
     Dosage: 75 MILLIGRAM, BID
     Route: 065
  12. DURAGESIC [Suspect]
     Active Substance: FENTANYL
     Indication: Pain
     Dosage: UNK, 50 MCG PATCH
     Route: 062
  13. VICODIN [Suspect]
     Active Substance: ACETAMINOPHEN\HYDROCODONE BITARTRATE
     Indication: Pain
     Dosage: UNK, PRN
     Route: 065
  14. IBUPROFEN [Suspect]
     Active Substance: IBUPROFEN
     Indication: Pain
     Dosage: 800 MILLIGRAM, QID
     Route: 065
  15. DEMEROL [Suspect]
     Active Substance: MEPERIDINE HYDROCHLORIDE
     Indication: Pain
     Dosage: UNK
     Route: 065
  16. CELEBREX [Suspect]
     Active Substance: CELECOXIB
     Indication: Pain
     Dosage: UNK, BID
     Route: 065
  17. LORCET [Concomitant]
     Active Substance: ACETAMINOPHEN\HYDROCODONE BITARTRATE
     Indication: Pain
     Dosage: UNK
     Route: 065
  18. KENALOG [Concomitant]
     Active Substance: TRIAMCINOLONE ACETONIDE
     Indication: Product used for unknown indication
     Dosage: 80 MILLIGRAM
     Route: 030
  19. XANAX [Concomitant]
     Active Substance: ALPRAZOLAM
     Indication: Depression
     Dosage: UNK
     Route: 065
  20. XANAX [Concomitant]
     Active Substance: ALPRAZOLAM
     Indication: Anxiety
     Dosage: UNK, 0.5 MG, 5 ONLY HALF QID PRN
     Route: 065
  21. XANAX [Concomitant]
     Active Substance: ALPRAZOLAM
     Dosage: 0.5 MILLIGRAM, PRN (ONE BID, AS NEEDED)
     Route: 065
  22. HALCION [Concomitant]
     Active Substance: TRIAZOLAM
     Indication: Insomnia
     Dosage: 0.5 MILLIGRAM, PRN (QHS)
     Route: 065
  23. HALCION [Concomitant]
     Active Substance: TRIAZOLAM
     Dosage: 0.5 MILLIGRAM, PRN (QHS)
     Route: 065
  24. AMBIEN [Concomitant]
     Active Substance: ZOLPIDEM TARTRATE
     Indication: Product used for unknown indication
     Dosage: 10 MILLIGRAM, QHS
     Route: 065
  25. VIAGRA [Concomitant]
     Active Substance: SILDENAFIL CITRATE
     Indication: Sexual dysfunction
     Dosage: 50 MILLIGRAM, QD
     Route: 065

REACTIONS (14)
  - Suicidal ideation [Unknown]
  - Bronchitis [Not Recovered/Not Resolved]
  - Drug dependence [Unknown]
  - Haematochezia [Unknown]
  - Gastrooesophageal reflux disease [Recovering/Resolving]
  - Abdominal discomfort [Recovering/Resolving]
  - Feeling abnormal [Unknown]
  - Nausea [Unknown]
  - Headache [Unknown]
  - Vomiting [Unknown]
  - Abdominal pain upper [Unknown]
  - Dysphagia [Unknown]
  - Drug intolerance [Unknown]
  - Adverse event [Unknown]

NARRATIVE: CASE EVENT DATE: 20010201
